FAERS Safety Report 16991150 (Version 1)
Quarter: 2019Q4

REPORT INFORMATION
  Report Type: Spontaneous
  Country: US (occurrence: US)
  Receive Date: 20190920
  Receipt Date: 20190920
  Transmission Date: 20200122
  Serious: Yes (Other)
  Sender: FDA-Public Use
  Company Number: None

PATIENT
  Age: 3 Year
  Sex: Male
  Weight: 15.88 kg

DRUGS (1)
  1. OSELTAMIVIR [Suspect]
     Active Substance: OSELTAMIVIR
     Indication: INFLUENZA
     Route: 048
     Dates: start: 20190409, end: 20190509

REACTIONS (5)
  - Nightmare [None]
  - Middle insomnia [None]
  - Sleep terror [None]
  - Abnormal behaviour [None]
  - Aggression [None]

NARRATIVE: CASE EVENT DATE: 20190509
